FAERS Safety Report 5157167-X (Version None)
Quarter: 2006Q4

REPORT INFORMATION
  Report Type: 
  Country: None (occurrence: None)
  Receive Date: 20061127
  Receipt Date: 20060825
  Transmission Date: 20070319
  Serious: Yes (Other)
  Sender: FDA-Public Use
  Company Number: US-ELI_LILLY_AND_COMPANY-US200608005942

PATIENT
  Age: 78 Year
  Sex: Female

DRUGS (9)
  1. FORTEO [Suspect]
     Indication: OSTEOPOROSIS
     Dosage: 20 UG, DAILY (1/D)
     Dates: start: 20060801
  2. CLONIDINE [Concomitant]
     Indication: BLOOD PRESSURE SYSTOLIC INCREASED
     Dosage: UNK UNK, AS NEEDED
  3. TOPROL-XL [Concomitant]
     Indication: HYPERTENSION
  4. POTASSIUM ACETATE [Concomitant]
     Indication: HYPERTENSION
  5. MAGNESIUM [Concomitant]
     Indication: HYPERTENSION
  6. TARKA [Concomitant]
     Indication: HYPERTENSION
  7. LIBRAX [Concomitant]
     Indication: GASTROINTESTINAL DISORDER
  8. NEXIUM [Concomitant]
     Indication: GASTROOESOPHAGEAL REFLUX DISEASE
  9. PROCRIT [Concomitant]
     Indication: ANAEMIA
     Dosage: UNK UNK, MONTHLY (1/M)
     Dates: start: 20000101

REACTIONS (2)
  - BLOOD PRESSURE INCREASED [None]
  - PHARMACEUTICAL PRODUCT COMPLAINT [None]
